FAERS Safety Report 8882674 (Version 1)
Quarter: 2012Q4

REPORT INFORMATION
  Report Type: Report from Study
  Country: TW (occurrence: TW)
  Receive Date: 20121102
  Receipt Date: 20121102
  Transmission Date: 20130627
  Serious: Yes (Hospitalization, Disabling)
  Sender: FDA-Public Use
  Company Number: PHHO2010TW08223

PATIENT
  Age: 62 Year
  Sex: Male
  Weight: 59.75 kg

DRUGS (10)
  1. PLACEBO [Suspect]
     Dosage: UNK
     Route: 048
     Dates: start: 20090911
  2. DIOVAN [Suspect]
     Dosage: 80mg, QD
     Dates: start: 20080828, end: 20100531
  3. DIOVAN [Suspect]
     Dosage: 40mg
     Dates: start: 20100603
  4. DILATREND [Suspect]
  5. LASIX [Concomitant]
  6. ATORVASTATIN [Concomitant]
  7. METFORMIN [Concomitant]
  8. ASPIRIN [Concomitant]
  9. SITAGLIPTIN [Concomitant]
  10. PLAVIX [Concomitant]

REACTIONS (13)
  - Renal impairment [Recovered/Resolved]
  - Hypotension [Recovered/Resolved]
  - Cardiac failure congestive [Recovered/Resolved]
  - Dyspnoea [Recovered/Resolved]
  - Orthopnoea [Recovered/Resolved]
  - Rales [Recovered/Resolved]
  - Cardiomegaly [Recovered/Resolved]
  - Chest discomfort [Recovered/Resolved]
  - Pulmonary congestion [Recovered/Resolved]
  - Upper respiratory tract infection [Recovered/Resolved]
  - Cough [Recovered/Resolved]
  - Rhinorrhoea [Recovering/Resolving]
  - Fatigue [Recovered/Resolved]
